FAERS Safety Report 9921807 (Version 2)
Quarter: 2014Q1

REPORT INFORMATION
  Report Type: Spontaneous
  Country: AU (occurrence: AU)
  Receive Date: 20140225
  Receipt Date: 20140331
  Transmission Date: 20141002
  Serious: Yes (Other)
  Sender: FDA-Public Use
  Company Number: AU-PFIZER INC-2014048124

PATIENT
  Age: 17 Year
  Sex: Female
  Weight: 53 kg

DRUGS (3)
  1. DEPO-RALOVERA [Suspect]
     Indication: CONTRACEPTION
     Dosage: 150 MG, EVERY 3 MONTHS
     Route: 030
     Dates: start: 20121210
  2. LEXAPRO [Concomitant]
  3. CLOMIPRAMINE [Concomitant]

REACTIONS (3)
  - Drug administered at inappropriate site [Recovered/Resolved]
  - Injection site reaction [Not Recovered/Not Resolved]
  - Injection site atrophy [Not Recovered/Not Resolved]
